FAERS Safety Report 7177250-7 (Version None)
Quarter: 2010Q4

REPORT INFORMATION
  Report Type: 
  Country: None (occurrence: None)
  Receive Date: 20101216
  Receipt Date: 20101216
  Transmission Date: 20110411
  Serious: Yes (Other)
  Sender: FDA-Public Use
  Company Number: None

PATIENT
  Age: 54 Year
  Sex: Male
  Weight: 77.1115 kg

DRUGS (2)
  1. AGGRENOX [Suspect]
     Indication: ANTICOAGULANT THERAPY
     Dosage: 200MG DAILY PO
     Route: 048
     Dates: start: 20060627, end: 20060701
  2. AGGRENOX [Suspect]
     Indication: THROMBOSIS
     Dosage: 200MG DAILY PO
     Route: 048
     Dates: start: 20060627, end: 20060701

REACTIONS (4)
  - HEADACHE [None]
  - INSOMNIA [None]
  - PAIN IN EXTREMITY [None]
  - PALPITATIONS [None]
